FAERS Safety Report 6523051-X (Version None)
Quarter: 2009Q4

REPORT INFORMATION
  Report Type: 
  Country: None (occurrence: None)
  Receive Date: 20091222
  Receipt Date: 20091210
  Transmission Date: 20100525
  Serious: Yes (Other)
  Sender: FDA-Public Use
  Company Number: 090353

PATIENT
  Age: 52 Year
  Sex: Male
  Weight: 99.7913 kg

DRUGS (1)
  1. HALFLYTELY [Suspect]
     Indication: COLONOSCOPY
     Dosage: 10MG/24OZ/1X/PO
     Route: 048
     Dates: start: 20091209

REACTIONS (9)
  - ANAPHYLACTIC SHOCK [None]
  - HANGOVER [None]
  - HEADACHE [None]
  - LIP SWELLING [None]
  - LOCAL SWELLING [None]
  - PHARYNGEAL OEDEMA [None]
  - RASH [None]
  - RESPIRATORY DISORDER [None]
  - SOMNOLENCE [None]
